FAERS Safety Report 10036761 (Version 1)
Quarter: 2014Q1

REPORT INFORMATION
  Report Type: Spontaneous
  Country: US (occurrence: US)
  Receive Date: 20140326
  Receipt Date: 20140326
  Transmission Date: 20141002
  Serious: No
  Sender: FDA-Public Use
  Company Number: US-BIOGENIDEC-2014BI024791

PATIENT
  Sex: Female

DRUGS (10)
  1. TECFIDERA [Suspect]
     Indication: MULTIPLE SCLEROSIS
     Route: 048
     Dates: start: 201401
  2. TECFIDERA [Suspect]
     Indication: MULTIPLE SCLEROSIS
     Route: 048
  3. ATIVAN [Concomitant]
  4. TOPROL [Concomitant]
  5. NEURONTIN [Concomitant]
  6. TEGRETOL [Concomitant]
  7. ADVIL [Concomitant]
  8. BACLOFEN [Concomitant]
  9. VITAMIN D [Concomitant]
  10. DULOXETINE [Concomitant]

REACTIONS (2)
  - Change of bowel habit [Unknown]
  - Flushing [Unknown]
